FAERS Safety Report 15980633 (Version 1)
Quarter: 2019Q1

REPORT INFORMATION
  Report Type: Spontaneous
  Country: JP (occurrence: JP)
  Receive Date: 20190219
  Receipt Date: 20190219
  Transmission Date: 20190418
  Serious: Yes (Other)
  Sender: FDA-Public Use
  Company Number: JP-BAYER-2019-032932

PATIENT
  Age: 67 Year
  Sex: Male

DRUGS (1)
  1. XOFIGO [Suspect]
     Active Substance: RADIUM RA-223 DICHLORIDE
     Indication: HORMONE-REFRACTORY PROSTATE CANCER
     Dosage: Q1MON, 3 TIMES DONE
     Route: 042
     Dates: start: 20180302, end: 20180602

REACTIONS (2)
  - General physical health deterioration [Unknown]
  - Hormone-refractory prostate cancer [None]

NARRATIVE: CASE EVENT DATE: 20180602
